FAERS Safety Report 9535604 (Version 1)
Quarter: 2013Q3

REPORT INFORMATION
  Report Type: Spontaneous
  Country: DE (occurrence: DE)
  Receive Date: 20130919
  Receipt Date: 20130919
  Transmission Date: 20140515
  Serious: Yes (Other)
  Sender: FDA-Public Use
  Company Number: DE-BIOGENIDEC-2013BI088322

PATIENT
  Sex: Female
  Weight: 90 kg

DRUGS (6)
  1. AVONEX [Suspect]
     Indication: MULTIPLE SCLEROSIS
     Route: 030
     Dates: start: 20130601
  2. NOVALGIN [Concomitant]
     Indication: CHILLS
     Route: 048
     Dates: start: 20130601
  3. NOVALGIN [Concomitant]
     Indication: PAIN IN EXTREMITY
     Route: 048
     Dates: start: 20130601
  4. NOVALGIN [Concomitant]
     Indication: PYREXIA
     Route: 048
     Dates: start: 20130601
  5. NOVALGIN [Concomitant]
     Indication: FATIGUE
     Route: 048
     Dates: start: 20130601
  6. NOVALGIN [Concomitant]
     Indication: HEADACHE
     Route: 048
     Dates: start: 20130601

REACTIONS (7)
  - Pyrexia [Recovered/Resolved]
  - Hyperhidrosis [Recovered/Resolved]
  - Asthenia [Recovered/Resolved]
  - Mood swings [Not Recovered/Not Resolved]
  - Constipation [Not Recovered/Not Resolved]
  - Motor dysfunction [Not Recovered/Not Resolved]
  - Paraesthesia [Not Recovered/Not Resolved]
